FAERS Safety Report 8825567 (Version 1)
Quarter: 2012Q4

REPORT INFORMATION
  Report Type: 
  Country: US (occurrence: US)
  Receive Date: 20121004
  Receipt Date: 20121004
  Transmission Date: 20130627
  Serious: Yes (Hospitalization, Other)
  Sender: FDA-Public Use
  Company Number: US-009507513-2011SP059163

PATIENT
  Age: 48 Year
  Sex: Female
  Weight: 92.97 kg

DRUGS (2)
  1. NUVARING [Suspect]
     Indication: MENORRHAGIA
     Dates: start: 20091216, end: 20100106
  2. NUVARING [Suspect]
     Indication: MENOPAUSAL SYMPTOMS

REACTIONS (16)
  - Deep vein thrombosis [Unknown]
  - Pulmonary embolism [Unknown]
  - Mitral valve prolapse [Unknown]
  - Atrial fibrillation [Unknown]
  - Sinusitis [Unknown]
  - Bunion [Unknown]
  - Bunion operation [Unknown]
  - Migraine [Unknown]
  - Orthostatic hypotension [Unknown]
  - Hyperlipidaemia [Unknown]
  - Adverse drug reaction [Unknown]
  - Weight increased [Unknown]
  - Alopecia [Unknown]
  - Dry skin [Unknown]
  - Electrocardiogram abnormal [Unknown]
  - Pleural effusion [Unknown]
